FAERS Safety Report 14935628 (Version 4)
Quarter: 2019Q1

REPORT INFORMATION
  Report Type: Spontaneous
  Country: US (occurrence: US)
  Receive Date: 20180524
  Receipt Date: 20190122
  Transmission Date: 20190417
  Serious: Yes (Life-Threatening, Other)
  Sender: FDA-Public Use
  Company Number: US-TESARO, INC-US-2017TSO02943

PATIENT
  Sex: Female
  Weight: 79.37 kg

DRUGS (4)
  1. ZEJULA [Suspect]
     Active Substance: NIRAPARIB
     Indication: OVARIAN CANCER
     Dosage: 300 MG, QD
     Route: 048
     Dates: start: 20170822, end: 20170910
  2. ZEJULA [Suspect]
     Active Substance: NIRAPARIB
     Indication: RETROPERITONEAL CANCER
     Dosage: 200 MG, UNK
     Route: 048
     Dates: start: 20180202
  3. ZEJULA [Suspect]
     Active Substance: NIRAPARIB
     Indication: MALIGNANT PERITONEAL NEOPLASM
     Dosage: 100 MG, UNK
     Dates: end: 20190110
  4. ZEJULA [Suspect]
     Active Substance: NIRAPARIB
     Indication: MALIGNANT PERITONEAL NEOPLASM
     Dosage: 100 MG, QD
     Route: 048
     Dates: start: 20171130

REACTIONS (16)
  - Eastern Cooperative Oncology Group performance status [Unknown]
  - Neuropathy peripheral [Unknown]
  - Lymphocyte count decreased [Not Recovered/Not Resolved]
  - Vaginal haemorrhage [Not Recovered/Not Resolved]
  - Contusion [Unknown]
  - Red blood cell count decreased [Recovering/Resolving]
  - Hepatic lesion [Not Recovered/Not Resolved]
  - Eye disorder [Unknown]
  - Thrombocytopenia [Unknown]
  - Fatigue [Recovered/Resolved]
  - Blood potassium decreased [Not Recovered/Not Resolved]
  - Large intestinal ulcer [Unknown]
  - Carbohydrate antigen 125 increased [Not Recovered/Not Resolved]
  - Insomnia [Not Recovered/Not Resolved]
  - Peripheral swelling [Not Recovered/Not Resolved]
  - Nausea [Unknown]
